FAERS Safety Report 11997795 (Version 1)
Quarter: 2016Q1

REPORT INFORMATION
  Report Type: Spontaneous
  Country: US (occurrence: None)
  Receive Date: 20160202
  Receipt Date: 20160202
  Transmission Date: 20160526
  Serious: Yes (Hospitalization)
  Sender: FDA-Public Use
  Company Number: None

PATIENT
  Age: 62 Year
  Sex: Male
  Weight: 109.2 kg

DRUGS (1)
  1. TEMOZOLOMIDE. [Suspect]
     Active Substance: TEMOZOLOMIDE
     Dosage: PATIENT RETREATED WITH C#5
     Dates: end: 20151116

REACTIONS (5)
  - Sepsis [None]
  - Brain oedema [None]
  - Necrosis [None]
  - Hydrocephalus [None]
  - Haemorrhage intracranial [None]

NARRATIVE: CASE EVENT DATE: 20151108
